FAERS Safety Report 16513782 (Version 1)
Quarter: 2019Q3

REPORT INFORMATION
  Report Type: Spontaneous
  Country: US (occurrence: US)
  Receive Date: 20190701
  Receipt Date: 20190701
  Transmission Date: 20191004
  Serious: No
  Sender: FDA-Public Use
  Company Number: US-ROCHE-2160115

PATIENT
  Age: 9 Year
  Sex: Male

DRUGS (5)
  1. TRIHEXYPHENIDYL [Concomitant]
     Active Substance: TRIHEXYPHENIDYL
  2. CLONAZEPAM. [Suspect]
     Active Substance: CLONAZEPAM
     Indication: MYOCLONUS
     Dosage: AT BEDTIME
     Route: 065
  3. CLONIDINE. [Concomitant]
     Active Substance: CLONIDINE
     Dosage: BEFORE BEDTIME
     Route: 065
  4. LISDEXAMFETAMINE [Concomitant]
     Active Substance: LISDEXAMFETAMINE
     Route: 065
  5. CLONAZEPAM. [Suspect]
     Active Substance: CLONAZEPAM
     Indication: DYSTONIA

REACTIONS (1)
  - Sleep-related eating disorder [Recovered/Resolved]
